FAERS Safety Report 5284147-6 (Version None)
Quarter: 2007Q2

REPORT INFORMATION
  Report Type: 
  Country: None (occurrence: None)
  Receive Date: 20070403
  Receipt Date: 20070323
  Transmission Date: 20071010
  Serious: Yes (Death)
  Sender: FDA-Public Use
  Company Number: US-JNJFOC-20070204192

PATIENT
  Sex: Female
  Weight: 60.78 kg

DRUGS (4)
  1. DURAGESIC-100 [Suspect]
     Indication: PAIN
     Route: 062
  2. ELAVIL [Suspect]
     Indication: DEPRESSION
     Route: 065
  3. NEXIUM [Suspect]
     Indication: GASTROOESOPHAGEAL REFLUX DISEASE
     Route: 065
  4. CARISOPRODOL [Interacting]
     Indication: MUSCLE RELAXANT THERAPY
     Route: 065

REACTIONS (6)
  - COMPLETED SUICIDE [None]
  - CONFUSIONAL STATE [None]
  - DRUG INTERACTION [None]
  - MEDICATION ERROR [None]
  - NARCOTIC INTOXICATION [None]
  - RESPIRATORY ARREST [None]
